FAERS Safety Report 5224057-3 (Version None)
Quarter: 2007Q1

REPORT INFORMATION
  Report Type: 
  Country: None (occurrence: None)
  Receive Date: 20070130
  Receipt Date: 20070125
  Transmission Date: 20070707
  Serious: Yes (Death, Life-Threatening, Hospitalization)
  Sender: FDA-Public Use
  Company Number: HQWYE292324JUL06

PATIENT
  Sex: Male

DRUGS (24)
  1. ANCARON [Suspect]
     Indication: VENTRICULAR TACHYCARDIA
     Route: 048
     Dates: start: 20060622, end: 20060628
  2. ANCARON [Suspect]
     Route: 048
     Dates: start: 20060629, end: 20060706
  3. ANCARON [Suspect]
     Route: 048
     Dates: start: 20060707, end: 20060708
  4. ZYLORIC [Concomitant]
     Indication: HYPERURICAEMIA
     Dosage: 50 OR 100 MG DAILY
     Route: 048
     Dates: start: 20060608, end: 20060630
  5. SLOW-K [Concomitant]
     Indication: HYPOKALAEMIA
     Route: 048
     Dates: start: 20060609, end: 20060626
  6. LASIX [Concomitant]
     Indication: CARDIAC FAILURE CONGESTIVE
     Route: 048
     Dates: start: 20060608, end: 20060707
  7. LASIX [Concomitant]
     Route: 042
     Dates: start: 20060708
  8. INOVAN [Concomitant]
     Dosage: 2 - 3 ML/HR
     Route: 042
     Dates: start: 20060708
  9. WARFARIN POTASSIUM [Concomitant]
     Indication: ATRIAL FIBRILLATION
     Route: 048
     Dates: start: 20060607, end: 20060613
  10. WARFARIN POTASSIUM [Concomitant]
     Route: 048
     Dates: start: 20060614, end: 20060615
  11. WARFARIN POTASSIUM [Concomitant]
     Route: 048
     Dates: start: 20060616, end: 20060626
  12. WARFARIN POTASSIUM [Concomitant]
     Route: 048
     Dates: start: 20060630, end: 20060630
  13. WARFARIN POTASSIUM [Concomitant]
     Route: 048
     Dates: start: 20060701, end: 20060707
  14. DOBUTREX [Concomitant]
     Indication: SHOCK
     Route: 042
     Dates: start: 20060607, end: 20060629
  15. DOBUTREX [Concomitant]
     Route: 042
     Dates: start: 20060630, end: 20060701
  16. DOBUTREX [Concomitant]
     Route: 042
     Dates: start: 20060701, end: 20060707
  17. DOBUTREX [Concomitant]
     Route: 042
     Dates: start: 20060707
  18. SHINBIT [Concomitant]
     Indication: VENTRICULAR TACHYCARDIA
     Route: 042
     Dates: start: 20060613, end: 20060615
  19. SHINBIT [Concomitant]
     Route: 042
     Dates: start: 20060616, end: 20060621
  20. SHINBIT [Concomitant]
     Route: 042
     Dates: start: 20060622, end: 20060629
  21. MILRINONE [Concomitant]
     Route: 042
     Dates: start: 20060708, end: 20060709
  22. MILRINONE [Concomitant]
     Route: 042
     Dates: start: 20060709, end: 20060710
  23. GASTER [Concomitant]
     Indication: GASTRITIS
     Route: 048
     Dates: start: 20060608, end: 20060629
  24. ALDACTONE [Concomitant]
     Indication: CARDIAC FAILURE CONGESTIVE
     Dosage: 25 MG ONCE OR TWICE DAILY
     Route: 048
     Dates: start: 20060608, end: 20060707

REACTIONS (4)
  - CARDIAC FAILURE [None]
  - CARDIOGENIC SHOCK [None]
  - CONDITION AGGRAVATED [None]
  - SEPSIS [None]
